FAERS Safety Report 7037705-2 (Version None)
Quarter: 2010Q4

REPORT INFORMATION
  Report Type: 
  Country: None (occurrence: None)
  Receive Date: 20101011
  Receipt Date: 20101004
  Transmission Date: 20110411
  Serious: Yes (Other)
  Sender: FDA-Public Use
  Company Number: JP-MERCK-0912USA00398

PATIENT
  Age: 61 Year
  Sex: Male

DRUGS (5)
  1. PEPCID [Suspect]
     Route: 048
     Dates: start: 20080101
  2. CEFDINIR [Suspect]
     Indication: PYREXIA
     Route: 048
     Dates: start: 20080419
  3. PREDNISOLONE [Concomitant]
     Route: 048
     Dates: start: 20080429, end: 20080501
  4. ZONISAMIDE [Concomitant]
     Indication: CEREBRAL HAEMORRHAGE
     Route: 048
     Dates: start: 20080101
  5. GANCICLOVIR [Suspect]
     Indication: CYTOMEGALOVIRUS INFECTION
     Route: 065

REACTIONS (4)
  - DRUG RASH WITH EOSINOPHILIA AND SYSTEMIC SYMPTOMS [None]
  - PANCYTOPENIA [None]
  - STEVENS-JOHNSON SYNDROME [None]
  - VIRAEMIA [None]
